FAERS Safety Report 6807988-X (Version None)
Quarter: 2010Q2

REPORT INFORMATION
  Report Type: 
  Country: None (occurrence: None)
  Receive Date: 20100629
  Receipt Date: 20090601
  Transmission Date: 20101027
  Serious: No
  Sender: FDA-Public Use
  Company Number: US-PFIZER INC-2008154713

PATIENT
  Age: 33 Year
  Sex: Male

DRUGS (3)
  1. XANAX [Suspect]
  2. AMBIEN [Suspect]
     Dosage: 10 MG, UNK
  3. AMBIEN [Suspect]

REACTIONS (1)
  - RESPIRATION ABNORMAL [None]
